FAERS Safety Report 21994412 (Version 2)
Quarter: 2023Q1

REPORT INFORMATION
  Report Type: Spontaneous
  Country: DE (occurrence: DE)
  Receive Date: 20230215
  Receipt Date: 20230216
  Transmission Date: 20230418
  Serious: Yes (Other)
  Sender: FDA-Public Use
  Company Number: DE-002147023-NVSC2023DE026994

PATIENT
  Age: 7 Year
  Sex: Male

DRUGS (1)
  1. ESTRADIOL [Suspect]
     Active Substance: ESTRADIOL
     Indication: Product used for unknown indication
     Dosage: PATERNAL DOSE: 3.75 MG, QD (TRANSDERMAL HORMONE THERAPY, HIGH DOSE OF 5 PUMP ACTUATIONS PER DAY)
     Route: 062

REACTIONS (5)
  - Epiphyses premature fusion [Recovering/Resolving]
  - Gynaecomastia [Recovering/Resolving]
  - Hair growth abnormal [Recovering/Resolving]
  - Precocious puberty [Recovering/Resolving]
  - Exposure via skin contact [Unknown]
